FAERS Safety Report 13422368 (Version 1)
Quarter: 2017Q2

REPORT INFORMATION
  Report Type: Spontaneous
  Country: US (occurrence: US)
  Receive Date: 20170408
  Receipt Date: 20170408
  Transmission Date: 20170830
  Serious: Yes (Life-Threatening, Hospitalization, Disabling, Other)
  Sender: FDA-Public Use
  Company Number: None

PATIENT
  Age: 31 Year
  Sex: Male
  Weight: 76.5 kg

DRUGS (4)
  1. NIFEDIPINE XL [Concomitant]
     Active Substance: NIFEDIPINE
  2. TEMAZEPAM 30MG CAPSULES [Suspect]
     Active Substance: TEMAZEPAM
     Indication: INSOMNIA
     Dosage: ?          QUANTITY:10 CAPSULE(S);?AS NEEDED ORAL
     Route: 048
     Dates: start: 20170310, end: 20170318
  3. HYDROCHLOROTHIAZIDE. [Concomitant]
     Active Substance: HYDROCHLOROTHIAZIDE
  4. NATURE^S WAY ST JOHN^S WORT [Concomitant]

REACTIONS (12)
  - Memory impairment [None]
  - Hypertension [None]
  - Paranoia [None]
  - Nervousness [None]
  - Legal problem [None]
  - Antisocial behaviour [None]
  - Psychotic disorder [None]
  - Somnambulism [None]
  - Drug hypersensitivity [None]
  - Mental status changes [None]
  - Abnormal behaviour [None]
  - Delirium [None]

NARRATIVE: CASE EVENT DATE: 20170313
